FAERS Safety Report 15393859 (Version 2)
Quarter: 2018Q3

REPORT INFORMATION
  Report Type: Spontaneous
  Country: US (occurrence: US)
  Receive Date: 20180917
  Receipt Date: 20180920
  Transmission Date: 20181010
  Serious: Yes (Other)
  Sender: FDA-Public Use
  Company Number: US-ALLERGAN-1844908US

PATIENT
  Age: 51 Year
  Sex: Female

DRUGS (3)
  1. GENTAMICIN. [Concomitant]
     Active Substance: GENTAMICIN
     Indication: INTRAOPERATIVE CARE
     Dosage: UNK UNK, UNKNOWN
     Route: 042
  2. CLINDAMYCIN. [Concomitant]
     Active Substance: CLINDAMYCIN
     Indication: INTRAOPERATIVE CARE
     Dosage: UNK UNK, UNKNOWN
     Route: 042
  3. BOTULINUM TOXIN TYPE A UNK [Suspect]
     Active Substance: BOTULINUM TOXIN TYPE A
     Indication: URINARY INCONTINENCE
     Dosage: UNK, SINGLE
     Route: 043

REACTIONS (1)
  - Toxic shock syndrome [Recovered/Resolved]
